FAERS Safety Report 18589245 (Version 5)
Quarter: 2021Q1

REPORT INFORMATION
  Report Type: Report from Study
  Country: US (occurrence: US)
  Receive Date: 20201208
  Receipt Date: 20210121
  Transmission Date: 20210419
  Serious: No
  Sender: FDA-Public Use
  Company Number: US-SA-2020SA351586

PATIENT
  Age: 39 Year
  Sex: Female

DRUGS (2)
  1. TERIFLUNOMIDE. [Suspect]
     Active Substance: TERIFLUNOMIDE
     Indication: MULTIPLE SCLEROSIS
     Dosage: 14 MG, QD
     Route: 048
     Dates: start: 20201121, end: 202012
  2. TERIFLUNOMIDE. [Suspect]
     Active Substance: TERIFLUNOMIDE
     Dosage: 14 MG, QD
     Route: 048
     Dates: start: 20210113

REACTIONS (9)
  - Vomiting [Not Recovered/Not Resolved]
  - Fatigue [Recovering/Resolving]
  - Thirst [Unknown]
  - Decreased appetite [Not Recovered/Not Resolved]
  - Gastric disorder [Not Recovered/Not Resolved]
  - Somnolence [Unknown]
  - Nausea [Not Recovered/Not Resolved]
  - Headache [Not Recovered/Not Resolved]
  - Dry mouth [Unknown]

NARRATIVE: CASE EVENT DATE: 2020
